FAERS Safety Report 13682211 (Version 1)
Quarter: 2017Q2

REPORT INFORMATION
  Report Type: Report from Study
  Country: US (occurrence: US)
  Receive Date: 20170623
  Receipt Date: 20170623
  Transmission Date: 20170830
  Serious: Yes (Other)
  Sender: FDA-Public Use
  Company Number: US-EMD SERONO-8017558

PATIENT
  Age: 3 Year
  Sex: Male
  Weight: 19 kg

DRUGS (8)
  1. SAIZEN [Suspect]
     Active Substance: SOMATROPIN
     Indication: BODY HEIGHT BELOW NORMAL
     Route: 058
  2. SAIZEN [Suspect]
     Active Substance: SOMATROPIN
     Indication: GROWTH HORMONE DEFICIENCY
     Route: 058
  3. SAIZEN [Suspect]
     Active Substance: SOMATROPIN
     Route: 058
  4. ACETAZOLAMIDE. [Concomitant]
     Active Substance: ACETAZOLAMIDE
     Route: 048
  5. SAIZEN [Suspect]
     Active Substance: SOMATROPIN
     Route: 058
  6. MIRALAX [Concomitant]
     Active Substance: POLYETHYLENE GLYCOL 3350
     Indication: PRODUCT USED FOR UNKNOWN INDICATION
     Dosage: 0.5 CAPFUL MIXED IN 2 TO 4 OUNCES WATER
     Route: 048
  7. ACETAZOLAMIDE. [Concomitant]
     Active Substance: ACETAZOLAMIDE
     Indication: PRODUCT USED FOR UNKNOWN INDICATION
     Dosage: ONE TABLET EVERY MORNING AND TWO TABLETS EVERY EVENING ONCE A WEEK THEN TWO TABLETS TWO TIMES A DAY
     Route: 048
  8. SAIZEN [Suspect]
     Active Substance: SOMATROPIN
     Indication: HYPOPITUITARISM
     Route: 058

REACTIONS (16)
  - Blood urine present [Unknown]
  - Pain [Unknown]
  - White blood cell count decreased [Unknown]
  - Neutrophil count decreased [Unknown]
  - Mean cell haemoglobin concentration increased [Unknown]
  - Haemoglobin distribution width decreased [Unknown]
  - Blood urea increased [Unknown]
  - Mean platelet volume increased [Unknown]
  - Papilloedema [Unknown]
  - Red cell distribution width decreased [Unknown]
  - Anisometropia [Unknown]
  - Blood glucose decreased [Recovered/Resolved]
  - Blood pressure diastolic increased [Unknown]
  - Intracranial pressure increased [Unknown]
  - Strabismus [Recovering/Resolving]
  - Haemoglobin increased [Unknown]

NARRATIVE: CASE EVENT DATE: 20140109
